FAERS Safety Report 6373230-X (Version None)
Quarter: 2009Q3

REPORT INFORMATION
  Report Type: 
  Country: None (occurrence: None)
  Receive Date: 20090924
  Receipt Date: 20090129
  Transmission Date: 20100115
  Serious: No
  Sender: FDA-Public Use
  Company Number: US-ASTRAZENECA-2009UW02614

PATIENT
  Sex: Female
  Weight: 82.6 kg

DRUGS (3)
  1. SEROQUEL [Suspect]
     Indication: ANXIETY
     Route: 048
     Dates: start: 20080601
  2. CLONOPIN [Concomitant]
  3. LUMOX [Concomitant]

REACTIONS (3)
  - BREAST DISCHARGE [None]
  - CYSTITIS [None]
  - WEIGHT INCREASED [None]
